FAERS Safety Report 24831429 (Version 2)
Quarter: 2025Q2

REPORT INFORMATION
  Report Type: Spontaneous
  Country: US (occurrence: US)
  Receive Date: 20250110
  Receipt Date: 20250515
  Transmission Date: 20250716
  Serious: No
  Sender: SANOFI AVENTIS
  Company Number: US-SA-2025SA008092

PATIENT
  Age: 8 Year
  Sex: Male

DRUGS (2)
  1. DUPIXENT [Suspect]
     Active Substance: DUPILUMAB
     Indication: Eosinophilic oesophagitis
     Dosage: 200 MG, QOW
     Route: 058
     Dates: start: 202105, end: 202410
  2. DUPIXENT [Suspect]
     Active Substance: DUPILUMAB
     Indication: Asthma
     Dosage: 300 MG, QOW
     Route: 058
     Dates: start: 202410

REACTIONS (4)
  - Lacrimation increased [Unknown]
  - Pharyngitis streptococcal [Recovered/Resolved]
  - Sinusitis [Unknown]
  - Eosinophilic oesophagitis [Unknown]

NARRATIVE: CASE EVENT DATE: 20241001
